FAERS Safety Report 16693882 (Version 2)
Quarter: 2019Q3

REPORT INFORMATION
  Report Type: Report from Study
  Country: US (occurrence: US)
  Receive Date: 20190812
  Receipt Date: 20190823
  Transmission Date: 20191004
  Serious: Yes (Hospitalization)
  Sender: FDA-Public Use
  Company Number: US-ACTELION-A-NJ2019-194118

PATIENT
  Age: 8 Month
  Sex: Male

DRUGS (7)
  1. PEPCID [Concomitant]
     Active Substance: FAMOTIDINE
     Dosage: 2.8 MG, BID
     Dates: start: 201903
  2. BOSENTAN TABLET 32 MG PED US [Suspect]
     Active Substance: BOSENTAN
     Indication: PULMONARY ARTERIAL HYPERTENSION
     Dosage: 5 MG, BID
     Route: 048
     Dates: start: 20190503
  3. SILDENAFIL. [Concomitant]
     Active Substance: SILDENAFIL
     Dosage: 10 MG, TID
     Route: 048
     Dates: start: 201903
  4. CAPTOPRIL. [Concomitant]
     Active Substance: CAPTOPRIL
     Dosage: 0.8 MG, TID
     Dates: start: 201903
  5. LASIX [Concomitant]
     Active Substance: FUROSEMIDE
     Dosage: 6 MG, TID
     Dates: start: 201902
  6. BOSENTAN TABLET 32 MG PED US [Suspect]
     Active Substance: BOSENTAN
     Dosage: 10 MG, BID
     Route: 048
     Dates: start: 20190423
  7. ASPIRIN. [Concomitant]
     Active Substance: ASPIRIN
     Dosage: 20 MG, QD
     Dates: start: 20190501

REACTIONS (10)
  - Cardiac failure [Recovering/Resolving]
  - Dyspnoea [Recovering/Resolving]
  - Alanine aminotransferase increased [Recovered/Resolved]
  - Pulmonary hypertensive crisis [Recovered/Resolved]
  - Cardiac failure acute [Recovering/Resolving]
  - Aspartate aminotransferase increased [Recovered/Resolved]
  - Pneumonia [Unknown]
  - Cardiac arrest [Recovered/Resolved]
  - Viral infection [Unknown]
  - Pneumonia moraxella [Recovered/Resolved]

NARRATIVE: CASE EVENT DATE: 20190718
